FAERS Safety Report 19753373 (Version 1)
Quarter: 2021Q3

REPORT INFORMATION
  Report Type: Spontaneous
  Country: US (occurrence: US)
  Receive Date: 20210826
  Receipt Date: 20210826
  Transmission Date: 20211014
  Serious: Yes (Other)
  Sender: FDA-Public Use
  Company Number: None

PATIENT
  Age: 59 Year
  Sex: Male
  Weight: 87.3 kg

DRUGS (1)
  1. ERLEADA [Suspect]
     Active Substance: APALUTAMIDE
     Indication: PROSTATE CANCER
     Route: 048
     Dates: start: 20210717, end: 20210824

REACTIONS (5)
  - Choking [None]
  - Dry mouth [None]
  - Therapy cessation [None]
  - Weight decreased [None]
  - Dysphagia [None]

NARRATIVE: CASE EVENT DATE: 20210824
